FAERS Safety Report 4661699-8 (Version None)
Quarter: 2005Q2

REPORT INFORMATION
  Report Type: 
  Country: None (occurrence: None)
  Receive Date: 20050512
  Receipt Date: 20050512
  Transmission Date: 20051028
  Serious: Yes (Hospitalization)
  Sender: FDA-Public Use
  Company Number: None

PATIENT
  Age: 22 Year
  Sex: Female
  Weight: 82.5 kg

DRUGS (6)
  1. GAFITINIB [Suspect]
     Indication: GLIOBLASTOMA MULTIFORME
     Dosage: 70 MG WEEKLY
     Dates: start: 20050502, end: 20050509
  2. RAD 001 [Suspect]
     Indication: GLIOBLASTOMA MULTIFORME
     Dosage: 280 MG DAILY
     Dates: start: 20050502, end: 20050509
  3. DEPAKOTE [Concomitant]
  4. DECADRON [Concomitant]
  5. PROTONIX [Concomitant]
  6. DEPISONE [Concomitant]

REACTIONS (5)
  - DEPRESSED LEVEL OF CONSCIOUSNESS [None]
  - GRAND MAL CONVULSION [None]
  - MUSCLE TWITCHING [None]
  - POSTICTAL STATE [None]
  - SOMNOLENCE [None]
